FAERS Safety Report 4697878-3 (Version None)
Quarter: 2005Q2

REPORT INFORMATION
  Report Type: 
  Country: None (occurrence: None)
  Receive Date: 20050623
  Receipt Date: 20050609
  Transmission Date: 20051028
  Serious: Yes (Other)
  Sender: FDA-Public Use
  Company Number: JP-NOVOPROD-244719

PATIENT
  Age: 57 Year
  Sex: Male
  Weight: 98 kg

DRUGS (1)
  1. NOVORAPID 30 MIX CHU FLEXPEN [Suspect]
     Indication: INSULIN-REQUIRING TYPE II DIABETES MELLITUS
     Dosage: 30 IU, QD
     Route: 058
     Dates: start: 20040606

REACTIONS (8)
  - DYSPNOEA [None]
  - HYPERHIDROSIS [None]
  - HYPERVENTILATION [None]
  - HYPOGLYCAEMIA [None]
  - PALPITATIONS [None]
  - PANIC REACTION [None]
  - SPEECH DISORDER [None]
  - VISION BLURRED [None]
